FAERS Safety Report 8507000 (Version 5)
Quarter: 2015Q2

REPORT INFORMATION
  Report Type: Spontaneous
  Country: US (occurrence: US)
  Receive Date: 20120412
  Receipt Date: 20150508
  Transmission Date: 20150821
  Serious: Yes (Other)
  Sender: FDA-Public Use
  Company Number: US-ASTRAZENECA-2011SE44648

PATIENT
  Age: 41 Year
  Sex: Male

DRUGS (5)
  1. DURAMAX [Concomitant]
  2. NEXIUM [Suspect]
     Active Substance: ESOMEPRAZOLE MAGNESIUM
     Route: 048
  3. NEXIUM [Suspect]
     Active Substance: ESOMEPRAZOLE MAGNESIUM
     Route: 048
  4. NEXIUM [Suspect]
     Active Substance: ESOMEPRAZOLE MAGNESIUM
     Route: 048
  5. NEXIUM [Suspect]
     Active Substance: ESOMEPRAZOLE MAGNESIUM
     Route: 048

REACTIONS (11)
  - Drug dose omission [Unknown]
  - Gastric disorder [Unknown]
  - Intentional product misuse [Unknown]
  - Barrett^s oesophagus [Unknown]
  - Sleep disorder due to general medical condition, insomnia type [Unknown]
  - Hypophagia [Unknown]
  - Drug ineffective [Unknown]
  - Haemoptysis [Unknown]
  - Regurgitation [Unknown]
  - Dyspepsia [Unknown]
  - Malaise [Unknown]
